FAERS Safety Report 6634395-5 (Version None)
Quarter: 2010Q1

REPORT INFORMATION
  Report Type: 
  Country: None (occurrence: None)
  Receive Date: 20100315
  Receipt Date: 20100304
  Transmission Date: 20100710
  Serious: Yes (Hospitalization)
  Sender: FDA-Public Use
  Company Number: JP-AMGEN-KDC398658

PATIENT
  Sex: Male
  Weight: 66 kg

DRUGS (3)
  1. PANITUMUMAB [Suspect]
     Indication: SQUAMOUS CELL CARCINOMA
     Route: 041
     Dates: start: 20081112
  2. CISPLATIN [Concomitant]
     Dates: start: 20081112
  3. FLUOROURACIL [Concomitant]
     Dates: start: 20081112

REACTIONS (2)
  - FALL [None]
  - SPINAL SHOCK [None]
